FAERS Safety Report 13644030 (Version 1)
Quarter: 2017Q2

REPORT INFORMATION
  Report Type: Spontaneous
  Country: FR (occurrence: FR)
  Receive Date: 20170612
  Receipt Date: 20170612
  Transmission Date: 20170830
  Serious: Yes (Other)
  Sender: FDA-Public Use
  Company Number: FR-BAYER-2017-109794

PATIENT
  Age: 42 Year
  Sex: Female
  Weight: 95 kg

DRUGS (1)
  1. MIRENA [Suspect]
     Active Substance: LEVONORGESTREL
     Indication: CHEMICAL CONTRACEPTION
     Dosage: 20 MCG/24HR, CONT
     Route: 015
     Dates: start: 20150901

REACTIONS (11)
  - Weight increased [Unknown]
  - Abdominal pain [Unknown]
  - Abdominal distension [Unknown]
  - Irritability [Unknown]
  - Visual impairment [Unknown]
  - Acne [Unknown]
  - Breast pain [Unknown]
  - Fatigue [Unknown]
  - Renal pain [Unknown]
  - Headache [Unknown]
  - Loss of libido [Unknown]
